FAERS Safety Report 6231765-4 (Version None)
Quarter: 2009Q2

REPORT INFORMATION
  Report Type: 
  Country: None (occurrence: None)
  Receive Date: 20090616
  Receipt Date: 20090609
  Transmission Date: 20091009
  Serious: Yes (Other)
  Sender: FDA-Public Use
  Company Number: PHEH2009US03373

PATIENT
  Sex: Female

DRUGS (3)
  1. NEORAL [Suspect]
     Indication: BONE MARROW FAILURE
     Dosage: 100 MG, TID
     Dates: start: 20081101
  2. NEORAL [Suspect]
     Dosage: 300 MG, QD
     Dates: start: 20090201
  3. NEORAL [Suspect]
     Dosage: 400 MG, QD

REACTIONS (3)
  - HAEMOLYTIC ANAEMIA [None]
  - IMMUNOSUPPRESSANT DRUG LEVEL DECREASED [None]
  - THERAPEUTIC RESPONSE DECREASED [None]
